FAERS Safety Report 18611733 (Version 1)
Quarter: 2020Q4

REPORT INFORMATION
  Report Type: Spontaneous
  Country: CN (occurrence: CN)
  Receive Date: 20201214
  Receipt Date: 20201214
  Transmission Date: 20210114
  Serious: Yes (Other)
  Sender: FDA-Public Use
  Company Number: CN-BAXTER-2020BAX025025

PATIENT
  Age: 55 Year
  Sex: Female

DRUGS (4)
  1. ENDOXAN [Suspect]
     Active Substance: CYCLOPHOSPHAMIDE
     Indication: BREAST CANCER FEMALE
     Route: 041
     Dates: start: 20201008, end: 20201008
  2. SODIUM CHLORIDE. [Suspect]
     Active Substance: SODIUM CHLORIDE
     Indication: MEDICATION DILUTION
     Dosage: EPIRUBICIN HYDROCHLORIDE+ SODIUM CHLORIDE
     Route: 041
     Dates: start: 20201008, end: 20201008
  3. EPIRUBICIN HYDROCHLORIDE. [Suspect]
     Active Substance: EPIRUBICIN HYDROCHLORIDE
     Indication: BREAST CANCER FEMALE
     Dosage: EPIRUBICIN HYDROCHLORIDE + SODIUM CHLORIDE
     Route: 041
     Dates: start: 20201008, end: 20201008
  4. DOCETAXEL. [Suspect]
     Active Substance: DOCETAXEL
     Indication: BREAST CANCER FEMALE
     Route: 065
     Dates: start: 20201008

REACTIONS (6)
  - Feeding disorder [Recovering/Resolving]
  - Gastrointestinal injury [Recovering/Resolving]
  - Regurgitation [Recovering/Resolving]
  - Hiccups [Recovering/Resolving]
  - Vomiting [Recovering/Resolving]
  - Nausea [Recovering/Resolving]

NARRATIVE: CASE EVENT DATE: 20201008
